FAERS Safety Report 4484735-0 (Version None)
Quarter: 2004Q4

REPORT INFORMATION
  Report Type: 
  Country: None (occurrence: None)
  Receive Date: 20041025
  Receipt Date: 20041022
  Transmission Date: 20050328
  Serious: Yes (Hospitalization)
  Sender: FDA-Public Use
  Company Number: CA-MERCK-0410CAN00365

PATIENT
  Sex: Female

DRUGS (1)
  1. VIOXX [Suspect]
     Route: 048

REACTIONS (5)
  - DIARRHOEA [None]
  - DYSPEPSIA [None]
  - HYPERTENSION [None]
  - PAIN IN EXTREMITY [None]
  - VOMITING [None]
